FAERS Safety Report 20509564 (Version 2)
Quarter: 2022Q1

REPORT INFORMATION
  Report Type: Spontaneous
  Country: JP (occurrence: JP)
  Receive Date: 20220224
  Receipt Date: 20220322
  Transmission Date: 20220423
  Serious: Yes (Other)
  Sender: FDA-Public Use
  Company Number: JP-MSD-M2022-06052

PATIENT
  Age: 49 Year
  Sex: Female

DRUGS (13)
  1. MOLNUPIRAVIR [Suspect]
     Active Substance: MOLNUPIRAVIR
     Indication: COVID-19 treatment
     Dosage: 800 MILLIGRAM, BID
     Route: 048
     Dates: start: 20220211, end: 20220211
  2. CARBOCYSTEINE [Concomitant]
     Active Substance: CARBOCYSTEINE
     Indication: Dysphonia
     Dosage: 250 MILLIGRAM, TID
     Route: 048
     Dates: start: 20220209, end: 20220215
  3. CARBOCYSTEINE [Concomitant]
     Active Substance: CARBOCYSTEINE
     Indication: Productive cough
  4. CARBOCYSTEINE [Concomitant]
     Active Substance: CARBOCYSTEINE
     Indication: Oropharyngeal pain
  5. CARBOCYSTEINE [Concomitant]
     Active Substance: CARBOCYSTEINE
     Indication: Cough
  6. EPRAZINONE [Concomitant]
     Active Substance: EPRAZINONE
     Indication: Dysphonia
     Dosage: 20 MILLIGRAM, TID
     Route: 048
     Dates: start: 20220209, end: 20220215
  7. EPRAZINONE [Concomitant]
     Active Substance: EPRAZINONE
     Indication: Productive cough
  8. EPRAZINONE [Concomitant]
     Active Substance: EPRAZINONE
     Indication: Oropharyngeal pain
  9. EPRAZINONE [Concomitant]
     Active Substance: EPRAZINONE
     Indication: Cough
  10. TRANSAMIN [Concomitant]
     Active Substance: TRANEXAMIC ACID
     Indication: Dysphonia
     Dosage: 250 MILLIGRAM, TID
     Route: 048
     Dates: start: 20220209, end: 20220215
  11. TRANSAMIN [Concomitant]
     Active Substance: TRANEXAMIC ACID
     Indication: Productive cough
  12. TRANSAMIN [Concomitant]
     Active Substance: TRANEXAMIC ACID
     Indication: Oropharyngeal pain
  13. TRANSAMIN [Concomitant]
     Active Substance: TRANEXAMIC ACID
     Indication: Cough

REACTIONS (3)
  - Melaena [Unknown]
  - Abdominal pain [Unknown]
  - Diarrhoea [Unknown]

NARRATIVE: CASE EVENT DATE: 20220211
